FAERS Safety Report 20134068 (Version 1)
Quarter: 2021Q4

REPORT INFORMATION
  Report Type: Report from Study
  Country: US (occurrence: US)
  Receive Date: 20211201
  Receipt Date: 20211201
  Transmission Date: 20220303
  Serious: Yes (Other)
  Sender: FDA-Public Use
  Company Number: US-ABBVIE-21K-163-4167085-00

PATIENT
  Age: 76 Year
  Sex: Male

DRUGS (2)
  1. DUOPA [Suspect]
     Active Substance: CARBIDOPA\LEVODOPA
     Indication: Product used for unknown indication
     Route: 050
     Dates: start: 20190117
  2. DUOPA [Suspect]
     Active Substance: CARBIDOPA\LEVODOPA

REACTIONS (5)
  - Unresponsive to stimuli [Unknown]
  - Device issue [Unknown]
  - Aphasia [Unknown]
  - Malaise [Unknown]
  - Tension [Unknown]

NARRATIVE: CASE EVENT DATE: 20211115
